FAERS Safety Report 12272321 (Version 2)
Quarter: 2016Q3

REPORT INFORMATION
  Report Type: Spontaneous
  Country: US (occurrence: US)
  Receive Date: 20160415
  Receipt Date: 20160707
  Transmission Date: 20161109
  Serious: No
  Sender: FDA-Public Use
  Company Number: US-009507513-1604USA005738

PATIENT
  Age: 23 Year
  Sex: Female
  Weight: 164.63 kg

DRUGS (1)
  1. IMPLANON [Suspect]
     Active Substance: ETONOGESTREL
     Indication: CONTRACEPTION
     Dosage: 68 (UNSPECIFIED UNITS)1 ROD EVERY 3 YEARS
     Route: 059
     Dates: start: 20120801, end: 20160406

REACTIONS (6)
  - Device deployment issue [Recovered/Resolved]
  - Expired product administered [Unknown]
  - Difficulty removing drug implant [Recovered/Resolved]
  - Device breakage [Recovered/Resolved]
  - Incorrect drug administration duration [Unknown]
  - No adverse event [Unknown]

NARRATIVE: CASE EVENT DATE: 20120801
